FAERS Safety Report 6347337-7 (Version None)
Quarter: 2009Q3

REPORT INFORMATION
  Report Type: 
  Country: None (occurrence: None)
  Receive Date: 20090908
  Receipt Date: 20090908
  Transmission Date: 20100115
  Serious: No
  Sender: FDA-Public Use
  Company Number: None

PATIENT
  Age: 85 Year
  Sex: Male
  Weight: 119.2 kg

DRUGS (1)
  1. PIPERACILLIN AND TAZOBACTAM [Suspect]
     Dosage: 4.5 GM QID IV
     Route: 042
     Dates: start: 20090714, end: 20090723

REACTIONS (4)
  - DRUG HYPERSENSITIVITY [None]
  - EOSINOPHILS URINE PRESENT [None]
  - NEPHRITIS [None]
  - TUBULOINTERSTITIAL NEPHRITIS [None]
